FAERS Safety Report 24368535 (Version 1)
Quarter: 2024Q3

REPORT INFORMATION
  Report Type: Spontaneous
  Country: US (occurrence: US)
  Receive Date: 20240926
  Receipt Date: 20240926
  Transmission Date: 20241016
  Serious: No
  Sender: AMGEN
  Company Number: US-AMGEN-USASP2024186798

PATIENT
  Sex: Female

DRUGS (2)
  1. KRYSTEXXA [Suspect]
     Active Substance: PEGLOTICASE
     Indication: Gout
     Dosage: UNK
     Route: 065
  2. ALLOPURINOL [Concomitant]
     Active Substance: ALLOPURINOL
     Route: 065

REACTIONS (4)
  - Condition aggravated [Not Recovered/Not Resolved]
  - Therapy interrupted [Unknown]
  - Gout [Not Recovered/Not Resolved]
  - Blood uric acid increased [Not Recovered/Not Resolved]

NARRATIVE: CASE EVENT DATE: 20240101
